FAERS Safety Report 5247971-1 (Version None)
Quarter: 2007Q1

REPORT INFORMATION
  Report Type: 
  Country: None (occurrence: None)
  Receive Date: 20070226
  Receipt Date: 20070226
  Transmission Date: 20070707
  Serious: Yes (Other)
  Sender: FDA-Public Use
  Company Number: None

PATIENT
  Sex: Female
  Weight: 91.6266 kg

DRUGS (1)
  1. ZICAM COLD AND FLU NIGHTTIME MATRIXX INITIATIVES [Suspect]
     Indication: NASOPHARYNGITIS
     Dosage: 1 SPOON NIGHTTIME PO
     Route: 048
     Dates: start: 20070103, end: 20070106

REACTIONS (2)
  - AGEUSIA [None]
  - ANOSMIA [None]
